FAERS Safety Report 24749614 (Version 2)
Quarter: 2025Q1

REPORT INFORMATION
  Report Type: Spontaneous
  Country: US (occurrence: US)
  Receive Date: 20241218
  Receipt Date: 20250210
  Transmission Date: 20250409
  Serious: Yes (Other)
  Sender: PFIZER
  Company Number: US-PFIZER INC-202400324741

PATIENT
  Age: 61 Year
  Sex: Male

DRUGS (1)
  1. RUXIENCE [Suspect]
     Active Substance: RITUXIMAB-PVVR

REACTIONS (4)
  - Lymphoma [Unknown]
  - Joint swelling [Unknown]
  - Skin discolouration [Unknown]
  - Gait inability [Unknown]

NARRATIVE: CASE EVENT DATE: 20220301
